FAERS Safety Report 23841328 (Version 1)
Quarter: 2024Q2

REPORT INFORMATION
  Report Type: Spontaneous
  Country: CN (occurrence: CN)
  Receive Date: 20240510
  Receipt Date: 20240510
  Transmission Date: 20240716
  Serious: Yes (Hospitalization)
  Sender: FDA-Public Use
  Company Number: CN-NOVITIUMPHARMA-2024CNNVP00728

PATIENT
  Sex: Female

DRUGS (18)
  1. DEXAMETHASONE [Suspect]
     Active Substance: DEXAMETHASONE
     Indication: Acute myelomonocytic leukaemia
     Route: 037
     Dates: start: 20230303
  2. DAUNORUBICIN [Concomitant]
     Active Substance: DAUNORUBICIN
     Indication: Acute myelomonocytic leukaemia
     Route: 042
     Dates: start: 20230303
  3. DAUNORUBICIN [Concomitant]
     Active Substance: DAUNORUBICIN
     Dosage: SECOND COURSE OF CHEMOTHERAPY
     Route: 042
     Dates: start: 20230329
  4. CYTARABINE [Concomitant]
     Active Substance: CYTARABINE
     Indication: Acute myelomonocytic leukaemia
     Route: 042
     Dates: start: 20230303
  5. CYTARABINE [Concomitant]
     Active Substance: CYTARABINE
     Route: 037
  6. CYTARABINE [Concomitant]
     Active Substance: CYTARABINE
     Dosage: SECOND COURSE OF CHEMOTHERAPY
     Route: 042
     Dates: start: 20230329
  7. CYTARABINE [Concomitant]
     Active Substance: CYTARABINE
     Dosage: THIRD CHEMOTHERAPY COURSE
     Route: 042
     Dates: start: 20230501
  8. Omacetaxine-mepesuccinate [Concomitant]
     Indication: Acute myelomonocytic leukaemia
     Route: 042
     Dates: start: 20230303
  9. Omacetaxine-mepesuccinate [Concomitant]
     Route: 042
     Dates: start: 20230329
  10. METHOTREXATE [Concomitant]
     Active Substance: METHOTREXATE
     Indication: Acute myelomonocytic leukaemia
     Route: 037
     Dates: start: 20230303
  11. METHOTREXATE [Concomitant]
     Active Substance: METHOTREXATE
     Route: 037
     Dates: start: 20230329
  12. METHOTREXATE [Concomitant]
     Active Substance: METHOTREXATE
     Route: 037
     Dates: start: 20230501
  13. IDARUBICIN [Concomitant]
     Active Substance: IDARUBICIN
     Indication: Acute myelomonocytic leukaemia
     Route: 042
     Dates: start: 20230303
  14. IDARUBICIN [Concomitant]
     Active Substance: IDARUBICIN
     Route: 042
     Dates: start: 20230329
  15. GILTERITINIB [Concomitant]
     Active Substance: GILTERITINIB
     Indication: Acute myelomonocytic leukaemia
  16. MITOXANTRONE [Concomitant]
     Active Substance: MITOXANTRONE HYDROCHLORIDE
     Indication: Acute myelomonocytic leukaemia
     Route: 042
     Dates: start: 20230501
  17. DECITABINE [Concomitant]
     Active Substance: DECITABINE
     Indication: Acute myelomonocytic leukaemia
     Route: 042
     Dates: start: 20230501
  18. FILGRASTIM [Concomitant]
     Active Substance: FILGRASTIM
     Indication: Neutropenia

REACTIONS (1)
  - Drug ineffective [Unknown]
